FAERS Safety Report 24199088 (Version 2)
Quarter: 2024Q3

REPORT INFORMATION
  Report Type: Report from Study
  Country: US (occurrence: US)
  Receive Date: 20240812
  Receipt Date: 20240912
  Transmission Date: 20241016
  Serious: Yes (Other)
  Sender: ABBVIE
  Company Number: US-ABBVIE-5501546

PATIENT
  Age: 24 Year
  Sex: Female

DRUGS (1)
  1. HUMIRA [Suspect]
     Active Substance: ADALIMUMAB
     Indication: Crohn^s disease
     Route: 058
     Dates: start: 20220401

REACTIONS (7)
  - Fistula [Recovered/Resolved]
  - Colectomy [Recovered/Resolved]
  - Drug ineffective [Unknown]
  - Anorectal operation [Unknown]
  - Colonic fistula [Unknown]
  - Appendicectomy [Unknown]
  - Colon operation [Recovered/Resolved]

NARRATIVE: CASE EVENT DATE: 20240319
